FAERS Safety Report 5932860-7 (Version None)
Quarter: 2008Q4

REPORT INFORMATION
  Report Type: 
  Country: None (occurrence: None)
  Receive Date: 20081028
  Receipt Date: 20081024
  Transmission Date: 20090506
  Serious: Yes (Other)
  Sender: FDA-Public Use
  Company Number: US-ASTRAZENECA-2008UW23859

PATIENT
  Age: 75 Year
  Sex: Female
  Weight: 55.3 kg

DRUGS (7)
  1. CRESTOR [Suspect]
     Indication: BLOOD CHOLESTEROL INCREASED
     Route: 048
  2. DIOVAN [Concomitant]
  3. LORATADINE [Concomitant]
  4. MAGNESIUM SULFATE [Concomitant]
  5. CALCIUM [Concomitant]
  6. M.V.I. [Concomitant]
  7. ALEVE [Concomitant]

REACTIONS (3)
  - MUSCULAR WEAKNESS [None]
  - MYALGIA [None]
  - NERVE INJURY [None]
